FAERS Safety Report 6343638-7 (Version None)
Quarter: 2009Q3

REPORT INFORMATION
  Report Type: 
  Country: None (occurrence: None)
  Receive Date: 20090903
  Receipt Date: 20090817
  Transmission Date: 20100115
  Serious: Yes (Death)
  Sender: FDA-Public Use
  Company Number: 2009AL002566

PATIENT
  Age: 46 Year
  Sex: Male

DRUGS (14)
  1. DIGOXIN [Suspect]
     Dosage: 0.25MG, DAILY, PO
     Route: 048
  2. ENALAPRIL MALEATE [Concomitant]
  3. AMOXICILLIN [Concomitant]
  4. IBUPROFEN [Concomitant]
  5. ASPIRIN [Concomitant]
  6. LISINOPRIL [Concomitant]
  7. FONDAPARINUX [Concomitant]
  8. METOPROLOL TARTRATE [Concomitant]
  9. FAMOTIDINE [Concomitant]
  10. MAGNESIUM [Concomitant]
  11. PHOSPHOROUS [Concomitant]
  12. PRAVASTATIN [Concomitant]
  13. NITROGLYCERIN [Concomitant]
  14. ACETAMINOPHEN AND HYDROCODONE BITARTRATE [Concomitant]

REACTIONS (11)
  - ABASIA [None]
  - CARDIAC FAILURE CONGESTIVE [None]
  - CHEST PAIN [None]
  - DECREASED ACTIVITY [None]
  - DIZZINESS [None]
  - DYSSTASIA [None]
  - ECONOMIC PROBLEM [None]
  - FATIGUE [None]
  - INJURY [None]
  - SURGERY [None]
  - VISION BLURRED [None]
